FAERS Safety Report 5128322-X (Version None)
Quarter: 2006Q4

REPORT INFORMATION
  Report Type: 
  Country: None (occurrence: None)
  Receive Date: 20061011
  Receipt Date: 20060928
  Transmission Date: 20070319
  Serious: Yes (Hospitalization)
  Sender: FDA-Public Use
  Company Number: 2006111404

PATIENT
  Age: 55 Year
  Sex: Female
  Weight: 55 kg

DRUGS (5)
  1. SUTENT [Suspect]
     Indication: METASTATIC RENAL CELL CARCINOMA
     Dosage: 50 MG (50 MG, 1 IN 1 D), ORAL
     Route: 048
     Dates: start: 20060522
  2. OMEPRAZOLE [Concomitant]
  3. GABAPENTIN [Concomitant]
  4. BROMAZEPAM (BROMAZEPAM) [Concomitant]
  5. MORPHINE [Concomitant]

REACTIONS (3)
  - CONFUSIONAL STATE [None]
  - DEPRESSION [None]
  - MOOD ALTERED [None]
